FAERS Safety Report 21786264 (Version 1)
Quarter: 2022Q4

REPORT INFORMATION
  Report Type: Spontaneous
  Country: FR (occurrence: FR)
  Receive Date: 20221228
  Receipt Date: 20221228
  Transmission Date: 20230113
  Serious: Yes (Other)
  Sender: FDA-Public Use
  Company Number: FR-ROCHE-3246438

PATIENT
  Age: 1 Year
  Sex: Male

DRUGS (9)
  1. CLONAZEPAM [Suspect]
     Active Substance: CLONAZEPAM
     Indication: Status epilepticus
     Dosage: ONE INTRAVENOUS DOSE
     Route: 042
  2. DIAZEPAM [Suspect]
     Active Substance: DIAZEPAM
     Indication: Status epilepticus
     Dosage: 3 DOSES
  3. PHENYTOIN [Suspect]
     Active Substance: PHENYTOIN
     Indication: Status epilepticus
     Dosage: OVER 30 MINUTES
     Route: 042
  4. PHENYTOIN [Suspect]
     Active Substance: PHENYTOIN
     Indication: Status epilepticus
     Dosage: MAINTENANCE DOSE/ 5 MG.KG-1.H-1
     Route: 042
  5. PHENYTOIN [Suspect]
     Active Substance: PHENYTOIN
     Indication: Status epilepticus
     Dosage: 81 MG/L
     Route: 042
  6. PHENOBARBITAL [Suspect]
     Active Substance: PHENOBARBITAL
     Indication: Status epilepticus
     Dosage: ONE INTRAVENOUS DOSE
     Route: 042
  7. EPINEPHRINE [Concomitant]
     Active Substance: EPINEPHRINE
     Dosage: AT 2.3 MICROGRAM.KG-1.MIN-1
  8. NOREPINEPHRINE [Concomitant]
     Active Substance: NOREPINEPHRINE
     Dosage: 4.7 MICROGRAM.KG-1.MIN-1
  9. MILRINONE [Concomitant]
     Active Substance: MILRINONE
     Dosage: 0.7 MICROGRAM.KG-1.MIN-1

REACTIONS (9)
  - Seizure [Unknown]
  - Myoclonic epilepsy [Unknown]
  - Coma [Unknown]
  - Cardiogenic shock [Recovered/Resolved]
  - Cerebellar atrophy [Unknown]
  - Toxicity to various agents [Recovered/Resolved]
  - Nystagmus [Unknown]
  - Cerebral ataxia [Unknown]
  - Mutism [Unknown]
